FAERS Safety Report 8027518-7 (Version None)
Quarter: 2012Q1

REPORT INFORMATION
  Report Type: 
  Country: None (occurrence: None)
  Receive Date: 20120106
  Receipt Date: 20111222
  Transmission Date: 20120608
  Serious: Yes (Other)
  Sender: FDA-Public Use
  Company Number: IT-MYLANLABS-2012S1000028

PATIENT
  Age: 72 Year
  Sex: Female

DRUGS (7)
  1. ATENOLOL [Suspect]
     Indication: HYPERTENSION
     Route: 048
     Dates: start: 20090101, end: 20111113
  2. LEVOTHYROXINE SODIUM [Concomitant]
  3. TICLOPIDINA [Concomitant]
     Indication: CARDIOVASCULAR EVENT PROPHYLAXIS
  4. FUROSEMIDE [Suspect]
     Indication: HYPERTENSION
     Route: 048
     Dates: start: 20090101, end: 20111113
  5. GARDENALE /00023201/ [Concomitant]
     Indication: EPILEPSY
  6. MONOKET [Concomitant]
     Indication: CORONARY ARTERY DISEASE
  7. LEVOTHYROXINE SODIUM [Concomitant]
     Indication: HYPOTHYROIDISM

REACTIONS (2)
  - BRADYCARDIA [None]
  - HYPOKALAEMIA [None]
